FAERS Safety Report 6526297-X (Version None)
Quarter: 2009Q4

REPORT INFORMATION
  Report Type: 
  Country: None (occurrence: None)
  Receive Date: 20091222
  Receipt Date: 20091207
  Transmission Date: 20100525
  Serious: Yes (Life-Threatening, Hospitalization)
  Sender: FDA-Public Use
  Company Number: DSA_42146_2009

PATIENT
  Age: 53 Year
  Sex: Female

DRUGS (5)
  1. DILTIAZEM [Suspect]
     Indication: DRUG USE FOR UNKNOWN INDICATION
     Dosage: (30 MG)
  2. ACETAMINOPHEN [Suspect]
     Indication: DRUG USE FOR UNKNOWN INDICATION
     Dosage: (450 MG)
  3. AMITRIPTILINA [Concomitant]
  4. MEFENOKSALON [Concomitant]
  5. DICLOFENAC POTASSIUM [Concomitant]

REACTIONS (1)
  - ACUTE GENERALISED EXANTHEMATOUS PUSTULOSIS [None]
